FAERS Safety Report 5976755-1 (Version None)
Quarter: 2008Q4

REPORT INFORMATION
  Report Type: 
  Country: None (occurrence: None)
  Receive Date: 20081201
  Receipt Date: 20081201
  Transmission Date: 20090506
  Serious: No
  Sender: FDA-Public Use
  Company Number: None

PATIENT
  Age: 42 Year
  Sex: Female
  Weight: 132.9039 kg

DRUGS (1)
  1. CARBOPLATIN [Suspect]
     Indication: BREAST CANCER
     Dosage: 600 MG Q 3W IVSS 7 DOSES
     Route: 042
     Dates: start: 20080718, end: 20081124

REACTIONS (4)
  - FLUSHING [None]
  - INFUSION RELATED REACTION [None]
  - PRURITUS [None]
  - SKIN DISCOLOURATION [None]
